FAERS Safety Report 21576717 (Version 2)
Quarter: 2022Q4

REPORT INFORMATION
  Report Type: Report from Study
  Country: US (occurrence: US)
  Receive Date: 20221110
  Receipt Date: 20221128
  Transmission Date: 20230113
  Serious: Yes (Hospitalization, Other)
  Sender: FDA-Public Use
  Company Number: US-TAKEDA-2022TUS001251

PATIENT
  Sex: Male
  Weight: 97.51 kg

DRUGS (11)
  1. LANADELUMAB [Suspect]
     Active Substance: LANADELUMAB
     Indication: Renal cancer
     Dosage: 300 MILLIGRAM, Q4WEEKS
     Route: 058
     Dates: start: 20201023
  2. LANADELUMAB [Suspect]
     Active Substance: LANADELUMAB
     Indication: Immune system disorder
     Dosage: 300 MILLIGRAM, Q2WEEKS
     Route: 058
     Dates: start: 20201023
  3. LANADELUMAB [Suspect]
     Active Substance: LANADELUMAB
     Indication: Angioedema
  4. CABOMETYX [Suspect]
     Active Substance: CABOZANTINIB S-MALATE
     Indication: Product used for unknown indication
     Dosage: 60 MILLIGRAM, QD
     Route: 065
     Dates: start: 20220602
  5. CABOMETYX [Suspect]
     Active Substance: CABOZANTINIB S-MALATE
     Dosage: 40 MILLIGRAM, QD
     Route: 065
     Dates: start: 20220801
  6. ICATIBANT [Concomitant]
     Active Substance: ICATIBANT ACETATE
  7. GABAPENTIN [Concomitant]
     Active Substance: GABAPENTIN
  8. INLYTA [Concomitant]
     Active Substance: AXITINIB
  9. ACETAMINOPHEN\HYDROCODONE [Concomitant]
     Active Substance: ACETAMINOPHEN\HYDROCODONE
  10. CALCIUM\CHOLECALCIFEROL\COPPER\MAGNESIUM\MANGANESE\ZINC [Concomitant]
     Active Substance: CALCIUM\CHOLECALCIFEROL\COPPER\MAGNESIUM\MANGANESE\ZINC
  11. IMBRUVICA [Concomitant]
     Active Substance: IBRUTINIB

REACTIONS (2)
  - Renal cancer [Unknown]
  - Blister [Unknown]
